FAERS Safety Report 8465703-0 (Version None)
Quarter: 2012Q2

REPORT INFORMATION
  Report Type: 
  Country: None (occurrence: None)
  Receive Date: 20120626
  Receipt Date: 20120620
  Transmission Date: 20120825
  Serious: Yes (Life-Threatening, Other)
  Sender: FDA-Public Use
  Company Number: US-GENZYME-CAMP-1002269

PATIENT
  Age: 55 Year
  Sex: Female
  Weight: 67 kg

DRUGS (1)
  1. CAMPATH [Suspect]
     Indication: PROPHYLAXIS AGAINST TRANSPLANT REJECTION
     Dosage: 30 MG, ONCE
     Route: 042
     Dates: start: 20110418, end: 20110418

REACTIONS (3)
  - PERICARDIAL EFFUSION [None]
  - CARDIAC TAMPONADE [None]
  - CARDIAC ARREST [None]
